FAERS Safety Report 4849293-7 (Version None)
Quarter: 2005Q4

REPORT INFORMATION
  Report Type: 
  Country: None (occurrence: None)
  Receive Date: 20051209
  Receipt Date: 20051201
  Transmission Date: 20060501
  Serious: Yes (Other)
  Sender: FDA-Public Use
  Company Number: US-JNJFOC-20051200966

PATIENT
  Sex: Male
  Weight: 65.77 kg

DRUGS (3)
  1. FENTANYL [Suspect]
     Route: 062
  2. VICODIN [Concomitant]
  3. VICODIN [Concomitant]
     Indication: PAIN

REACTIONS (12)
  - BODY TEMPERATURE INCREASED [None]
  - CIRCULATORY COLLAPSE [None]
  - CONVULSION [None]
  - DYSARTHRIA [None]
  - DYSPNOEA [None]
  - GENERALISED OEDEMA [None]
  - INFLUENZA LIKE ILLNESS [None]
  - PRURITUS GENERALISED [None]
  - RASH ERYTHEMATOUS [None]
  - RASH GENERALISED [None]
  - URTICARIA [None]
  - VOMITING [None]
